FAERS Safety Report 9862349 (Version 2)
Quarter: 2014Q1

REPORT INFORMATION
  Report Type: Spontaneous
  Country: US (occurrence: US)
  Receive Date: 20140203
  Receipt Date: 20140317
  Transmission Date: 20141002
  Serious: Yes (Other)
  Sender: FDA-Public Use
  Company Number: US-FRI-1000053302

PATIENT
  Age: 58 Year
  Sex: Male

DRUGS (17)
  1. DALIRESP [Suspect]
     Indication: CHRONIC OBSTRUCTIVE PULMONARY DISEASE
     Dosage: 500 MCG
     Route: 048
     Dates: start: 201307
  2. AMLODIPINE [Suspect]
     Indication: HYPERTENSION
     Dates: end: 2014
  3. AMLODIPINE [Suspect]
     Indication: HYPERTENSION
     Dates: start: 2014
  4. ATENOLOL [Suspect]
     Indication: HYPERTENSION
     Dates: start: 2014, end: 2014
  5. MORPHINE [Concomitant]
     Indication: HIP ARTHROPLASTY
  6. CLONAZEPAM [Concomitant]
  7. CITALOPRAM [Concomitant]
  8. RESTLESS LEG SYNDROME MEDICATION NOS [Concomitant]
     Indication: RESTLESS LEGS SYNDROME
  9. OMEPRAZOLE [Concomitant]
     Indication: DYSPEPSIA
  10. HYDROCHLOROTHIAZIDE [Concomitant]
  11. VITAMIN D3 [Concomitant]
  12. GREEN TEA SUPPLEMENT [Concomitant]
  13. VITAMIN-C [Concomitant]
  14. VITAMIN B-12 [Concomitant]
  15. SYMBICORT [Concomitant]
  16. GARCINIA CAMBOGIA [Concomitant]
     Indication: WEIGHT DECREASED
  17. VENTOLIN [Concomitant]
     Indication: CHRONIC OBSTRUCTIVE PULMONARY DISEASE

REACTIONS (7)
  - Bronchitis [Recovered/Resolved]
  - Dyspnoea [Not Recovered/Not Resolved]
  - Cough [Recovered/Resolved]
  - Blood pressure abnormal [Not Recovered/Not Resolved]
  - Headache [Recovered/Resolved]
  - Dizziness [Recovered/Resolved]
  - Drug ineffective [Not Recovered/Not Resolved]
